FAERS Safety Report 15266677 (Version 2)
Quarter: 2018Q4

REPORT INFORMATION
  Report Type: Report from Study
  Country: None (occurrence: GB)
  Receive Date: 20180810
  Receipt Date: 20181022
  Transmission Date: 20190204
  Serious: Yes (Death, Hospitalization, Other)
  Sender: FDA-Public Use
  Company Number: GB-ABBVIE-18K-167-2449150-00

PATIENT
  Age: 65 Year
  Sex: Female

DRUGS (1)
  1. HUMIRA [Suspect]
     Active Substance: ADALIMUMAB
     Indication: RHEUMATOID ARTHRITIS
     Route: 058
     Dates: start: 20070720, end: 20161115

REACTIONS (5)
  - Pyelonephritis [Fatal]
  - Tumour fistulisation [Unknown]
  - Tumour cavitation [Fatal]
  - Colon cancer metastatic [Fatal]
  - Metastases to liver [Fatal]
